FAERS Safety Report 19708313 (Version 1)
Quarter: 2021Q3

REPORT INFORMATION
  Report Type: Spontaneous
  Country: HU (occurrence: HU)
  Receive Date: 20210816
  Receipt Date: 20210816
  Transmission Date: 20211014
  Serious: Yes (Other)
  Sender: FDA-Public Use
  Company Number: HU-MYLANLABS-2021M1050083

PATIENT
  Sex: Female

DRUGS (2)
  1. METFORMIN [Suspect]
     Active Substance: METFORMIN HYDROCHLORIDE
     Indication: DIABETES MELLITUS
     Dosage: UNK
     Route: 065
  2. EZETIMIBE. [Concomitant]
     Active Substance: EZETIMIBE
     Indication: HYPERTRIGLYCERIDAEMIA
     Dosage: UNK
     Route: 065

REACTIONS (2)
  - Gastrointestinal disorder [Recovered/Resolved]
  - Hypoglycaemia [Recovered/Resolved]
